FAERS Safety Report 19145045 (Version 1)
Quarter: 2021Q2

REPORT INFORMATION
  Report Type: Spontaneous
  Country: IE (occurrence: IE)
  Receive Date: 20210416
  Receipt Date: 20210416
  Transmission Date: 20210717
  Serious: Yes (Other)
  Sender: FDA-Public Use
  Company Number: IE-MYLANLABS-2021M1022939

PATIENT
  Age: 32 Year
  Sex: Female

DRUGS (1)
  1. AZROMAX 250 MG FILM?COATED TABLETS [Suspect]
     Active Substance: AZITHROMYCIN
     Indication: RESPIRATORY TRACT INFECTION
     Dosage: 250 MILLIGRAM, QD (PATIENT WAS NOT SURE ABOUT THE FREQUENCY ONCE OR TWICE)
     Route: 048
     Dates: start: 202001

REACTIONS (19)
  - Gait disturbance [Not Recovered/Not Resolved]
  - Kidney infection [Not Recovered/Not Resolved]
  - Pruritus genital [Not Recovered/Not Resolved]
  - Ovarian cyst [Not Recovered/Not Resolved]
  - Fatigue [Not Recovered/Not Resolved]
  - Diarrhoea [Not Recovered/Not Resolved]
  - Jaw disorder [Not Recovered/Not Resolved]
  - Asthenia [Not Recovered/Not Resolved]
  - Palpitations [Not Recovered/Not Resolved]
  - Hypoaesthesia [Not Recovered/Not Resolved]
  - Hypertension [Not Recovered/Not Resolved]
  - Fluid retention [Not Recovered/Not Resolved]
  - Syncope [Not Recovered/Not Resolved]
  - Flank pain [Not Recovered/Not Resolved]
  - Discomfort [Not Recovered/Not Resolved]
  - Pain in extremity [Not Recovered/Not Resolved]
  - Pain [Not Recovered/Not Resolved]
  - Weight increased [Not Recovered/Not Resolved]
  - Genital odour [Not Recovered/Not Resolved]
